FAERS Safety Report 7546613-X (Version None)
Quarter: 2011Q2

REPORT INFORMATION
  Report Type: 
  Country: None (occurrence: None)
  Receive Date: 20110614
  Receipt Date: 20110531
  Transmission Date: 20111010
  Serious: Yes (Hospitalization, Other)
  Sender: FDA-Public Use
  Company Number: US-BAYER-201010013NA

PATIENT
  Age: 31 Year
  Sex: Female
  Weight: 107.94 kg

DRUGS (4)
  1. YASMIN [Suspect]
     Dosage: UNK UNK, UNK
     Route: 048
  2. EXCEDRIN (MIGRAINE) [Concomitant]
  3. YAZ [Suspect]
     Dosage: UNK UNK, UNK
     Route: 048
     Dates: start: 20070901, end: 20071101
  4. ORTHO CYCLEN-28 [Concomitant]
     Indication: CONTRACEPTION

REACTIONS (4)
  - CEREBROVASCULAR ACCIDENT [None]
  - THROMBOSIS [None]
  - HAEMORRHAGE INTRACRANIAL [None]
  - TRANSVERSE SINUS THROMBOSIS [None]
